FAERS Safety Report 8130809 (Version 5)
Quarter: 2015Q2

REPORT INFORMATION
  Report Type: Report from Study
  Country: BE (occurrence: BE)
  Receive Date: 20110912
  Receipt Date: 20150406
  Transmission Date: 20150821
  Serious: Yes (Hospitalization)
  Sender: FDA-Public Use
  Company Number: BE-UCBSA-040578

PATIENT
  Age: 47 Year
  Sex: Female

DRUGS (3)
  1. CERTOLIZUMAB PEGOL RA [Suspect]
     Active Substance: CERTOLIZUMAB PEGOL
     Indication: RHEUMATOID ARTHRITIS
     Dosage: DOSE:2 ; UNIT:200 ; NO OF DOSES RECEIVED:4
     Route: 058
     Dates: start: 20110609, end: 20110722
  2. NEORAL [Concomitant]
     Active Substance: CYCLOSPORINE
     Dosage: 4 MG, ONCE DAILY (QD)
     Route: 048
     Dates: start: 2009
  3. METHOTREXATE [Concomitant]
     Active Substance: METHOTREXATE
     Dosage: DOSE PER INTAKE: 2.5, 45 MG PER WEEK
     Route: 048
     Dates: start: 2009

REACTIONS (1)
  - Pruritus [Recovered/Resolved]

NARRATIVE: CASE EVENT DATE: 201107
